FAERS Safety Report 7723312-2 (Version None)
Quarter: 2011Q3

REPORT INFORMATION
  Report Type: 
  Country: None (occurrence: None)
  Receive Date: 20110901
  Receipt Date: 20110901
  Transmission Date: 20111222
  Serious: Yes (Other)
  Sender: FDA-Public Use
  Company Number: None

PATIENT
  Age: 61 Year
  Sex: Male
  Weight: 95.254 kg

DRUGS (1)
  1. ALTACE [Suspect]
     Indication: BLOOD PRESSURE
     Dosage: 10 MG
     Route: 048
     Dates: start: 20070101, end: 20110628

REACTIONS (3)
  - MYOCARDIAL INFARCTION [None]
  - CHEST PAIN [None]
  - DYSPNOEA [None]
